FAERS Safety Report 23381494 (Version 2)
Quarter: 2024Q1

REPORT INFORMATION
  Report Type: Spontaneous
  Country: US (occurrence: US)
  Receive Date: 20240109
  Receipt Date: 20240112
  Transmission Date: 20240409
  Serious: Yes (Other)
  Sender: FDA-Public Use
  Company Number: US-ABBVIE-5577180

PATIENT
  Sex: Female

DRUGS (1)
  1. RINVOQ [Suspect]
     Active Substance: UPADACITINIB
     Indication: Colitis ulcerative
     Dosage: FORM STRENGTH: 15 MILLIGRAM
     Route: 048

REACTIONS (5)
  - Hepatic steatosis [Unknown]
  - Diabetes mellitus [Unknown]
  - Aspartate aminotransferase increased [Unknown]
  - Transaminases increased [Unknown]
  - Blood alkaline phosphatase increased [Unknown]
